FAERS Safety Report 8932513 (Version 1)
Quarter: 2012Q4

REPORT INFORMATION
  Report Type: Spontaneous
  Country: US (occurrence: None)
  Receive Date: 20121121
  Receipt Date: 20121121
  Transmission Date: 20130627
  Serious: Yes (Hospitalization)
  Sender: FDA-Public Use
  Company Number: None

PATIENT
  Sex: Male
  Weight: 88.45 kg

DRUGS (1)
  1. AMOXICILLIN AND CALVULANATE POTASSIUM [Suspect]
     Indication: TOOTH INFECTION
     Dosage: 875-125 ? 2 TABS A DAY
     Dates: start: 20120820, end: 20120824

REACTIONS (6)
  - Chromaturia [None]
  - Abdominal pain upper [None]
  - Abdominal pain [None]
  - Fatigue [None]
  - Contusion [None]
  - Haemorrhage [None]
